FAERS Safety Report 7651242-3 (Version None)
Quarter: 2011Q3

REPORT INFORMATION
  Report Type: 
  Country: None (occurrence: None)
  Receive Date: 20110802
  Receipt Date: 20110728
  Transmission Date: 20111222
  Serious: Yes (Hospitalization, Other)
  Sender: FDA-Public Use
  Company Number: GR-ABBOTT-11P-066-0842700-00

PATIENT
  Sex: Female

DRUGS (4)
  1. PANWARFIN [Suspect]
     Indication: PULMONARY HYPERTENSION
  2. PANWARFIN [Suspect]
     Indication: ANTICOAGULANT THERAPY
  3. SILDENAFIL CITRATE [Suspect]
     Indication: PULMONARY ARTERIAL HYPERTENSION
  4. AMBRISENTANT [Concomitant]
     Indication: PULMONARY ARTERIAL HYPERTENSION

REACTIONS (3)
  - GASTRIC HAEMORRHAGE [None]
  - GASTRIC POLYPS [None]
  - INTERNATIONAL NORMALISED RATIO INCREASED [None]
